FAERS Safety Report 10726187 (Version 1)
Quarter: 2015Q1

REPORT INFORMATION
  Report Type: Spontaneous
  Country: JP (occurrence: JP)
  Receive Date: 20150121
  Receipt Date: 20150121
  Transmission Date: 20150721
  Serious: Yes (Hospitalization)
  Sender: FDA-Public Use
  Company Number: JP-AMGEN-JPNSP2015004661

PATIENT
  Age: 79 Year
  Sex: Male

DRUGS (13)
  1. DIOVAN [Concomitant]
     Active Substance: VALSARTAN
     Dosage: UNK
     Route: 065
  2. PREDNISOLONE. [Suspect]
     Active Substance: PREDNISOLONE
     Indication: PRODUCT USED FOR UNKNOWN INDICATION
     Dosage: UNK
     Route: 065
  3. CALFINA [Concomitant]
     Active Substance: ALFACALCIDOL
     Dosage: UNK
     Route: 065
  4. ELCITONIN [Concomitant]
     Active Substance: ELCATONIN
     Dosage: UNK
     Route: 065
  5. PRALIA [Suspect]
     Active Substance: DENOSUMAB
     Indication: OSTEOPOROSIS
     Dosage: 60 MG, UNK
     Route: 023
     Dates: start: 20140820
  6. CONIEL [Concomitant]
     Active Substance: BENIDIPINE HYDROCHLORIDE
     Dosage: UNK
     Route: 065
  7. ZETIA [Concomitant]
     Active Substance: EZETIMIBE
     Dosage: UNK
     Route: 065
  8. CALCIUM CARBONATE. [Concomitant]
     Active Substance: CALCIUM CARBONATE
     Dosage: UNK
     Route: 065
  9. SELBEX [Concomitant]
     Active Substance: TEPRENONE
     Dosage: UNK
     Route: 065
  10. FLUITRAN [Concomitant]
     Active Substance: TRICHLORMETHIAZIDE
     Dosage: UNK
     Route: 065
  11. GASTER [Concomitant]
     Active Substance: FAMOTIDINE
     Dosage: UNK
     Route: 065
  12. ROHYPNOL [Concomitant]
     Active Substance: FLUNITRAZEPAM
     Dosage: UNK
     Route: 065
  13. LIPITOR [Concomitant]
     Active Substance: ATORVASTATIN CALCIUM
     Dosage: UNK
     Route: 065

REACTIONS (1)
  - Osteomyelitis [Not Recovered/Not Resolved]

NARRATIVE: CASE EVENT DATE: 20141219
